FAERS Safety Report 7074896-1 (Version None)
Quarter: 2010Q4

REPORT INFORMATION
  Report Type: 
  Country: None (occurrence: None)
  Receive Date: 20101029
  Receipt Date: 20101015
  Transmission Date: 20110411
  Serious: Yes (Other)
  Sender: FDA-Public Use
  Company Number: US-GENZYME-FLUD-1000338

PATIENT

DRUGS (12)
  1. FLUDARA [Suspect]
     Indication: LYMPHOMA
     Dosage: UNK
     Route: 065
     Dates: start: 20080701
  2. FLUDARA [Suspect]
     Dosage: UNK
     Route: 065
  3. FLUDARA [Suspect]
     Dosage: UNK
     Route: 065
  4. FLUDARA [Suspect]
     Dosage: UNK
     Route: 065
  5. FLUDARA [Suspect]
     Dosage: UNK
     Route: 065
  6. FLUDARA [Suspect]
     Dosage: UNK
     Route: 065
     Dates: end: 20090101
  7. RITUXAN [Suspect]
     Indication: LYMPHOMA
     Dosage: UNK
     Route: 065
     Dates: start: 20080701
  8. RITUXAN [Suspect]
     Dosage: UNK
     Route: 065
  9. RITUXAN [Suspect]
     Dosage: UNK
     Route: 065
  10. RITUXAN [Suspect]
     Dosage: UNK
     Route: 065
  11. RITUXAN [Suspect]
     Dosage: UNK
     Route: 065
  12. RITUXAN [Suspect]
     Dosage: UNK
     Route: 065
     Dates: end: 20090101

REACTIONS (1)
  - REFRACTORY ANAEMIA WITH AN EXCESS OF BLASTS [None]
